FAERS Safety Report 17776568 (Version 2)
Quarter: 2020Q4

REPORT INFORMATION
  Report Type: Report from Study
  Country: US (occurrence: US)
  Receive Date: 20200513
  Receipt Date: 20201120
  Transmission Date: 20210113
  Serious: Yes (Death, Hospitalization, Other)
  Sender: FDA-Public Use
  Company Number: US-ACADIA PHARMACEUTICALS INC.-ACA-2019-013795

PATIENT
  Sex: Male

DRUGS (1)
  1. NUPLAZID [Suspect]
     Active Substance: PIMAVANSERIN TARTRATE
     Indication: PARKINSON^S DISEASE
     Dosage: 34 MG, QD
     Route: 048
     Dates: start: 20190528

REACTIONS (7)
  - General physical health deterioration [Unknown]
  - Hepatorenal syndrome [Fatal]
  - Acute hepatic failure [Fatal]
  - Acute kidney injury [Fatal]
  - Cryptogenic cirrhosis [Fatal]
  - Schizophrenia [Unknown]
  - Hallucination [Unknown]

NARRATIVE: CASE EVENT DATE: 2019
